FAERS Safety Report 8505560-7 (Version None)
Quarter: 2012Q3

REPORT INFORMATION
  Report Type: 
  Country: None (occurrence: None)
  Receive Date: 20120703
  Receipt Date: 20120618
  Transmission Date: 20120928
  Serious: Yes (Hospitalization, Other)
  Sender: FDA-Public Use
  Company Number: ENTC2012-0284

PATIENT
  Age: 75 Year
  Sex: Female

DRUGS (5)
  1. CALCIUM CARBONATE [Concomitant]
  2. STALEVO 50 [Suspect]
     Indication: PARKINSON'S DISEASE
     Dosage: 150/37.5/200 MG: 4 DF DAILY ORAL, 50/12.5/200 MG: 4 TABLETS DAILY ORAL
     Route: 048
     Dates: start: 20120301
  3. PAROXETINE HCL [Suspect]
     Indication: DEPRESSION
     Dosage: 1 DF DAILY; STRENGTH: 20 MG ORAL
     Route: 048
     Dates: end: 20120320
  4. EXELON [Concomitant]
  5. MODOPAR (LEVODOPA) [Suspect]
     Indication: PARKINSON'S DISEASE
     Dosage: 1 DF, DAILY: STRENGTH: 50/12/5 MG ORAL
     Route: 048
     Dates: end: 20120320

REACTIONS (8)
  - HALLUCINATION, VISUAL [None]
  - CONFUSIONAL STATE [None]
  - PARKINSON'S DISEASE [None]
  - FALL [None]
  - ANXIETY [None]
  - PSYCHOMOTOR HYPERACTIVITY [None]
  - EXTENSOR PLANTAR RESPONSE [None]
  - DYSKINESIA [None]
